FAERS Safety Report 5685699-4 (Version None)
Quarter: 2008Q1

REPORT INFORMATION
  Report Type: 
  Country: None (occurrence: None)
  Receive Date: 20080328
  Receipt Date: 20070821
  Transmission Date: 20080703
  Serious: No
  Sender: FDA-Public Use
  Company Number: US-BAYER-US-2007-031569

PATIENT
  Age: 25 Year
  Sex: Female
  Weight: 77 kg

DRUGS (3)
  1. MIRENA [Suspect]
     Indication: CONTRACEPTION
     Route: 015
     Dates: start: 20070423
  2. ZYRTEC [Concomitant]
     Indication: MULTIPLE ALLERGIES
  3. ADVAIR DISKUS 100/50 [Concomitant]
     Indication: ASTHMA

REACTIONS (4)
  - ABDOMINAL PAIN [None]
  - AMENORRHOEA [None]
  - IUCD COMPLICATION [None]
  - VAGINAL DISCHARGE [None]
